FAERS Safety Report 5088485-1 (Version None)
Quarter: 2006Q3

REPORT INFORMATION
  Report Type: 
  Country: None (occurrence: None)
  Receive Date: 20060823
  Receipt Date: 20060823
  Transmission Date: 20061208
  Serious: Yes (Hospitalization)
  Sender: FDA-Public Use
  Company Number: None

PATIENT
  Age: 79 Year
  Sex: Male
  Weight: 77.5651 kg

DRUGS (3)
  1. SPIRONOLACTONE [Suspect]
     Dosage: 25 MG PO BID
     Route: 048
  2. LISINOPRIL [Suspect]
     Dosage: 40 MG PO QD
     Route: 048
  3. FUROSEMIDE [Suspect]
     Dosage: 20 MG PO QD
     Route: 048

REACTIONS (5)
  - DEHYDRATION [None]
  - HYPERKALAEMIA [None]
  - HYPOVOLAEMIA [None]
  - POLYURIA [None]
  - RENAL FAILURE [None]
